FAERS Safety Report 7722038-9 (Version None)
Quarter: 2011Q3

REPORT INFORMATION
  Report Type: 
  Country: None (occurrence: None)
  Receive Date: 20110831
  Receipt Date: 20110823
  Transmission Date: 20111222
  Serious: Yes (Other)
  Sender: FDA-Public Use
  Company Number: CA-PURDUE-CAN-2011-0002169

PATIENT
  Sex: Male

DRUGS (6)
  1. HYDROMORPHONE HCL [Suspect]
     Indication: INJURY
     Route: 065
  2. METHAMPHETAMINE HYDROCHLORIDE [Suspect]
     Indication: PRODUCT USED FOR UNKNOWN INDICATION
     Route: 065
  3. MORPHINE SULFATE [Suspect]
     Indication: PRODUCT USED FOR UNKNOWN INDICATION
     Route: 065
  4. COCAINE [Suspect]
     Indication: PRODUCT USED FOR UNKNOWN INDICATION
     Route: 065
  5. MARIJUANA [Suspect]
     Indication: PRODUCT USED FOR UNKNOWN INDICATION
     Route: 065
  6. ALCOHOL [Suspect]
     Indication: PRODUCT USED FOR UNKNOWN INDICATION
     Route: 065

REACTIONS (9)
  - INSOMNIA [None]
  - SUBSTANCE ABUSE [None]
  - AGGRESSION [None]
  - PANIC REACTION [None]
  - DRUG DEPENDENCE [None]
  - NERVOUSNESS [None]
  - TREMOR [None]
  - PARANOIA [None]
  - JUDGEMENT IMPAIRED [None]
